FAERS Safety Report 24748670 (Version 2)
Quarter: 2024Q4

REPORT INFORMATION
  Report Type: Spontaneous
  Country: ES (occurrence: ES)
  Receive Date: 20241218
  Receipt Date: 20241218
  Transmission Date: 20250115
  Serious: Yes (Hospitalization, Other)
  Sender: ALEXION PHARMACEUTICALS
  Company Number: ES-ASTRAZENECA-202412GLO011874ES

PATIENT
  Age: 82 Year

DRUGS (19)
  1. OMEPRAZOLE [Suspect]
     Active Substance: OMEPRAZOLE
     Indication: Gastritis
     Dosage: 20 MILLIGRAM
  2. OMEPRAZOLE [Suspect]
     Active Substance: OMEPRAZOLE
     Dosage: 20 MILLIGRAM
     Route: 048
  3. OMEPRAZOLE [Suspect]
     Active Substance: OMEPRAZOLE
     Dosage: 20 MILLIGRAM
  4. OMEPRAZOLE [Suspect]
     Active Substance: OMEPRAZOLE
     Dosage: 20 MILLIGRAM
     Route: 048
  5. PROLIA [Concomitant]
     Active Substance: DENOSUMAB
     Indication: Osteoporosis
     Dosage: 60 MILLIGRAM, 1 IN 6 MONTH
     Route: 058
  6. PROLIA [Concomitant]
     Active Substance: DENOSUMAB
     Dosage: 60 MILLIGRAM, 1 IN 6 MONTH
  7. LEFLUNOMIDE [Concomitant]
     Active Substance: LEFLUNOMIDE
     Indication: Rheumatoid arthritis
     Dosage: 20 MILLIGRAM, QD
  8. DEFLAZACORT [Concomitant]
     Active Substance: DEFLAZACORT
     Indication: Rheumatoid arthritis
     Dosage: 6 MILLIGRAM
     Route: 048
  9. DEFLAZACORT [Concomitant]
     Active Substance: DEFLAZACORT
     Dosage: 6 MILLIGRAM
  10. FOLIC ACID [Concomitant]
     Active Substance: FOLIC ACID
     Indication: Rheumatoid arthritis
     Dosage: 5 MILLIGRAM
  11. PREGABALIN [Concomitant]
     Active Substance: PREGABALIN
     Dosage: 75 MILLIGRAM
  12. CALCIFEDIOL [Concomitant]
     Active Substance: CALCIFEDIOL
     Dosage: 0.266 MILLIGRAM
  13. SULPIRIDE [Concomitant]
     Active Substance: SULPIRIDE
     Dosage: 50 MILLIGRAM
  14. ACETAMINOPHEN [Concomitant]
     Active Substance: ACETAMINOPHEN
     Dosage: 650 MILLIGRAM
  15. DOXAZOSIN [Concomitant]
     Active Substance: DOXAZOSIN\DOXAZOSIN MESYLATE
     Dosage: 4 MILLIGRAM
  16. METFORMIN [Concomitant]
     Active Substance: METFORMIN HYDROCHLORIDE
     Dosage: 850 MILLIGRAM
  17. ATORVASTATIN [Concomitant]
     Active Substance: ATORVASTATIN
     Dosage: 20 MILLIGRAM
  18. METAMIZOLE [Concomitant]
     Active Substance: METAMIZOLE
     Dosage: 575 MILLIGRAM
  19. DEFLAZACORT [Concomitant]
     Active Substance: DEFLAZACORT
     Indication: Type 2 diabetes mellitus
     Dosage: 9 MILLIGRAM

REACTIONS (5)
  - Bacteraemia [Unknown]
  - Hypomagnesaemia [Recovered/Resolved]
  - Hypocalcaemia [Recovered/Resolved]
  - Diarrhoea infectious [Unknown]
  - Klebsiella infection [Unknown]
